FAERS Safety Report 14128043 (Version 1)
Quarter: 2017Q4

REPORT INFORMATION
  Report Type: Spontaneous
  Country: US (occurrence: None)
  Receive Date: 20171025
  Receipt Date: 20171025
  Transmission Date: 20180321
  Serious: No
  Sender: FDA-Public Use
  Company Number: None

PATIENT
  Age: 76 Year
  Sex: Male

DRUGS (1)
  1. TIZANIDINE. [Suspect]
     Active Substance: TIZANIDINE
     Indication: INTERVERTEBRAL DISC OPERATION
     Dates: start: 20170620, end: 20170807

REACTIONS (6)
  - Blood potassium decreased [None]
  - Dysstasia [None]
  - Blood sodium decreased [None]
  - Urinary tract infection [None]
  - Rhabdomyolysis [None]
  - Haematuria [None]

NARRATIVE: CASE EVENT DATE: 20170807
